FAERS Safety Report 13991302 (Version 1)
Quarter: 2017Q3

REPORT INFORMATION
  Report Type: Spontaneous
  Country: US (occurrence: US)
  Receive Date: 20170920
  Receipt Date: 20170920
  Transmission Date: 20171128
  Serious: No
  Sender: FDA-Public Use
  Company Number: US-TEVA-717402ACC

PATIENT
  Sex: Male
  Weight: 68 kg

DRUGS (1)
  1. HYDROXOCOBALAMIN [Suspect]
     Active Substance: HYDROXOCOBALAMIN
     Indication: VITAMIN B COMPLEX DEFICIENCY
     Dosage: DOSE TRENGTH : 1000 MCG/ML, DOSE: 0.5ML
     Dates: start: 201610, end: 201611

REACTIONS (7)
  - Burning sensation [Recovered/Resolved]
  - Fatigue [Recovered/Resolved]
  - Drug ineffective [Recovered/Resolved]
  - Expired product administered [Unknown]
  - Hypoaesthesia [Recovered/Resolved]
  - Condition aggravated [Recovered/Resolved]
  - Paraesthesia [Recovered/Resolved]

NARRATIVE: CASE EVENT DATE: 2016
